FAERS Safety Report 4360322-X (Version None)
Quarter: 2004Q2

REPORT INFORMATION
  Report Type: 
  Country: None (occurrence: None)
  Receive Date: 20040514
  Receipt Date: 20040506
  Transmission Date: 20050107
  Serious: Yes (Other)
  Sender: FDA-Public Use
  Company Number: 23924

PATIENT
  Age: 48 Year

DRUGS (15)
  1. ALDARA (5%, TOPICAL CREAM) (IMIQUIMOD) [Suspect]
     Indication: ACTINIC KERATOSIS
     Dosage: 2 SACHET, 3 IN 1 WEEK (S), TOPICAL
     Route: 061
     Dates: start: 20040301, end: 20040420
  2. ALDARA (5%, TOPICAL CREAM) (IMIQUIMOD) [Suspect]
     Indication: BASAL CELL CARCINOMA
     Dosage: 2 SACHET, 3 IN 1 WEEK (S), TOPICAL
     Route: 061
     Dates: start: 20040301, end: 20040420
  3. SERZONE [Suspect]
  4. PLAVIX [Suspect]
  5. LIPITOR [Concomitant]
  6. LOTENSIN [Concomitant]
  7. NURONTIN [Concomitant]
  8. NEXIUM [Concomitant]
  9. NIASPAN [Concomitant]
  10. TOPICAL FOLTX [Concomitant]
  11. ASPIRIN [Concomitant]
  12. CARAFATE [Concomitant]
  13. LOKARA LOTION [Concomitant]
  14. TRIAZ LOTION [Concomitant]
  15. LOTOX GS [Concomitant]

REACTIONS (9)
  - APPLICATION SITE VESICLES [None]
  - CSF TEST ABNORMAL [None]
  - DIZZINESS [None]
  - FATIGUE [None]
  - INFLUENZA LIKE ILLNESS [None]
  - LHERMITTE'S SIGN [None]
  - LYMPHADENOPATHY [None]
  - MALAISE [None]
  - MULTIPLE SCLEROSIS [None]
